FAERS Safety Report 16408666 (Version 1)
Quarter: 2019Q2

REPORT INFORMATION
  Report Type: Spontaneous
  Country: US (occurrence: US)
  Receive Date: 20190610
  Receipt Date: 20190610
  Transmission Date: 20190711
  Serious: No
  Sender: FDA-Public Use
  Company Number: US-SUN PHARMACEUTICAL INDUSTRIES LTD-2018US-178418

PATIENT
  Age: 21 Year
  Sex: Female

DRUGS (3)
  1. ABSORICA [Suspect]
     Active Substance: ISOTRETINOIN
     Dosage: 40 MG, BID
     Route: 065
     Dates: start: 20180706
  2. ABSORICA [Suspect]
     Active Substance: ISOTRETINOIN
     Indication: PRODUCT USED FOR UNKNOWN INDICATION
     Dosage: 1 DF, DAILY
     Route: 065
     Dates: start: 20180627, end: 20180705
  3. ABSORICA [Suspect]
     Active Substance: ISOTRETINOIN
     Dosage: UNK
     Route: 065
     Dates: start: 20180905

REACTIONS (10)
  - Erythema [Unknown]
  - Lip dry [Recovered/Resolved]
  - Dry skin [Unknown]
  - Chapped lips [Unknown]
  - Off label use [Recovered/Resolved]
  - Arthralgia [Unknown]
  - Myalgia [Unknown]
  - Seborrhoea [Unknown]
  - Product quality issue [Recovered/Resolved]
  - Pain in extremity [Recovered/Resolved]

NARRATIVE: CASE EVENT DATE: 2018
